FAERS Safety Report 15937528 (Version 2)
Quarter: 2019Q2

REPORT INFORMATION
  Report Type: Spontaneous
  Country: US (occurrence: US)
  Receive Date: 20190208
  Receipt Date: 20190417
  Transmission Date: 20190711
  Serious: Yes (Other)
  Sender: FDA-Public Use
  Company Number: US-BRISTOL-MYERS SQUIBB COMPANY-BMS-2019-012017

PATIENT
  Sex: Male
  Weight: 102.04 kg

DRUGS (1)
  1. ELIQUIS [Suspect]
     Active Substance: APIXABAN
     Indication: CEREBROVASCULAR ACCIDENT PROPHYLAXIS
     Dosage: 5 MG, BID
     Route: 048
     Dates: start: 201810

REACTIONS (6)
  - Atrial fibrillation [Unknown]
  - Dry mouth [Unknown]
  - Cardiac disorder [Unknown]
  - Product use issue [Unknown]
  - Cough [Unknown]
  - Anaemia [Unknown]
